FAERS Safety Report 6749765-4 (Version None)
Quarter: 2010Q2

REPORT INFORMATION
  Report Type: 
  Country: None (occurrence: None)
  Receive Date: 20100601
  Receipt Date: 20100525
  Transmission Date: 20101027
  Serious: Yes (Death)
  Sender: FDA-Public Use
  Company Number: US-GILEAD-2010-0029422

PATIENT
  Sex: Female

DRUGS (11)
  1. LETAIRIS [Suspect]
     Indication: PULMONARY ARTERIAL HYPERTENSION
     Route: 048
     Dates: start: 20091109
  2. REVATIO [Concomitant]
  3. CELLCEPT [Concomitant]
  4. PREDNISONE TAB [Concomitant]
  5. CODEINE SUL TAB [Concomitant]
  6. HYDROCODONE [Concomitant]
  7. HYDROXYCHLOR [Concomitant]
  8. ZANTAC [Concomitant]
  9. CALCIUM CARBONATE [Concomitant]
  10. MAGNESIUM [Concomitant]
  11. MULTI TAB FOR HER [Concomitant]

REACTIONS (1)
  - DEATH [None]
